FAERS Safety Report 8210953-1 (Version None)
Quarter: 2012Q1

REPORT INFORMATION
  Report Type: 
  Country: None (occurrence: None)
  Receive Date: 20120315
  Receipt Date: 20120307
  Transmission Date: 20120608
  Serious: Yes (Hospitalization)
  Sender: FDA-Public Use
  Company Number: IE-UCBSA-046422

PATIENT
  Age: 74 Year
  Sex: Female
  Weight: 51 kg

DRUGS (6)
  1. PRILOSEC [Concomitant]
     Route: 048
  2. METHOTREXATE [Concomitant]
     Route: 048
  3. GALPER [Concomitant]
     Route: 048
  4. ATENOLOL [Concomitant]
     Route: 048
  5. CIMZIA [Suspect]
     Indication: RHEUMATOID ARTHRITIS
     Dosage: FIRST DOSE
     Route: 058
     Dates: start: 20110901
  6. MICARDIS HCT [Concomitant]
     Dosage: DOSE PER INTAKE:40/12.5; NUMBER OF INTAKES:1; TOTAL DAILY DOSE:40/12.5
     Route: 048

REACTIONS (1)
  - HAEMOGLOBIN DECREASED [None]
